FAERS Safety Report 19355078 (Version 1)
Quarter: 2021Q2

REPORT INFORMATION
  Report Type: Spontaneous
  Country: CA (occurrence: CA)
  Receive Date: 20210601
  Receipt Date: 20210601
  Transmission Date: 20210717
  Serious: Yes (Other)
  Sender: FDA-Public Use
  Company Number: CA-JNJFOC-20210552792

PATIENT
  Age: 49 Year
  Sex: Male

DRUGS (2)
  1. CIPROFLOXACIN. [Concomitant]
     Active Substance: CIPROFLOXACIN
     Indication: CROHN^S DISEASE
     Route: 065
  2. INFLIXIMAB, RECOMBINANT [Suspect]
     Active Substance: INFLIXIMAB
     Indication: CROHN^S DISEASE
     Route: 042

REACTIONS (10)
  - Intestinal obstruction [Unknown]
  - Blood pressure fluctuation [Unknown]
  - Off label use [Unknown]
  - Abdominal pain [Unknown]
  - Hypertension [Unknown]
  - Constipation [Unknown]
  - Furuncle [Unknown]
  - Hunger [Unknown]
  - Flatulence [Unknown]
  - Inappropriate schedule of product administration [Unknown]
